FAERS Safety Report 7460541-X (Version None)
Quarter: 2011Q2

REPORT INFORMATION
  Report Type: 
  Country: None (occurrence: None)
  Receive Date: 20110505
  Receipt Date: 20110424
  Transmission Date: 20111010
  Serious: Yes (Disabling, Other)
  Sender: FDA-Public Use
  Company Number: PHHY2011PT35351

PATIENT
  Sex: Female

DRUGS (1)
  1. AMOXICILLIN SODIUM+POTASSIUM CLAVULANATE SANDOZ [Suspect]
     Indication: TOOTH EXTRACTION
     Dosage: UNK
     Dates: start: 20110419, end: 20110424

REACTIONS (7)
  - RECTAL HAEMORRHAGE [None]
  - URTICARIA [None]
  - HEADACHE [None]
  - VOMITING [None]
  - VULVOVAGINAL DRYNESS [None]
  - ANAL PRURITUS [None]
  - NAUSEA [None]
